FAERS Safety Report 4766216-X (Version None)
Quarter: 2005Q3

REPORT INFORMATION
  Report Type: 
  Country: None (occurrence: None)
  Receive Date: 20050912
  Receipt Date: 20050607
  Transmission Date: 20060218
  Serious: Yes (Hospitalization)
  Sender: FDA-Public Use
  Company Number: US-MERCK-0506USA01424

PATIENT
  Age: 53 Year
  Sex: Male
  Weight: 102 kg

DRUGS (4)
  1. VIOXX [Suspect]
     Indication: SPONDYLITIS
     Route: 048
     Dates: start: 19991115, end: 19991201
  2. VIOXX [Suspect]
     Route: 048
     Dates: start: 19991219, end: 20020401
  3. VIOXX [Suspect]
     Indication: BACK PAIN
     Route: 048
     Dates: start: 19991115, end: 19991201
  4. VIOXX [Suspect]
     Route: 048
     Dates: start: 19991219, end: 20020401

REACTIONS (6)
  - ACUTE MYOCARDIAL INFARCTION [None]
  - DEAFNESS [None]
  - EAR INFECTION [None]
  - ESSENTIAL HYPERTENSION [None]
  - HYPERTRIGLYCERIDAEMIA [None]
  - MYOCARDIAL ISCHAEMIA [None]
